FAERS Safety Report 20681859 (Version 1)
Quarter: 2022Q2

REPORT INFORMATION
  Report Type: Report from Study
  Country: CA (occurrence: CA)
  Receive Date: 20220407
  Receipt Date: 20220407
  Transmission Date: 20220721
  Serious: Yes (Other)
  Sender: FDA-Public Use
  Company Number: CA-ABBVIE-22K-028-4346331-00

PATIENT
  Age: 55 Year
  Sex: Male

DRUGS (1)
  1. HUMIRA [Suspect]
     Active Substance: ADALIMUMAB
     Indication: Rheumatoid arthritis
     Route: 058
     Dates: start: 20160118

REACTIONS (4)
  - Hemiplegia [Unknown]
  - Ankle operation [Unknown]
  - Cerebrovascular accident [Unknown]
  - Bone disorder [Unknown]

NARRATIVE: CASE EVENT DATE: 20200801
